FAERS Safety Report 7908902-6 (Version None)
Quarter: 2011Q4

REPORT INFORMATION
  Report Type: 
  Country: None (occurrence: None)
  Receive Date: 20111110
  Receipt Date: 20111110
  Transmission Date: 20120403
  Serious: Yes (Hospitalization)
  Sender: FDA-Public Use
  Company Number: None

PATIENT
  Sex: Female
  Weight: 74.11 kg

DRUGS (11)
  1. CISPLATIN [Suspect]
     Dosage: 89.5 MG
  2. DEXAMETHASONE [Concomitant]
  3. CEFIPINE [Concomitant]
  4. FOLIC ACID [Concomitant]
  5. COLACE [Concomitant]
  6. PEMETREXED [Suspect]
     Dosage: 895 MG
  7. VITAMIN B-12 [Concomitant]
  8. ZOFRAN [Concomitant]
  9. ERTAPENEM [Concomitant]
  10. METFORMIN HCL [Concomitant]
  11. ZOLPIDEN [Concomitant]

REACTIONS (7)
  - URINARY TRACT INFECTION [None]
  - PYREXIA [None]
  - MULTIPLE-DRUG RESISTANCE [None]
  - BACTERIAL TEST POSITIVE [None]
  - DEHYDRATION [None]
  - CONDITION AGGRAVATED [None]
  - HYDRONEPHROSIS [None]
